FAERS Safety Report 8248451-1 (Version None)
Quarter: 2012Q1

REPORT INFORMATION
  Report Type: 
  Country: None (occurrence: None)
  Receive Date: 20120330
  Receipt Date: 20120321
  Transmission Date: 20120608
  Serious: Yes (Other)
  Sender: FDA-Public Use
  Company Number: US-ELI_LILLY_AND_COMPANY-US201111004861

PATIENT
  Sex: Female

DRUGS (4)
  1. FORTEO [Suspect]
     Dosage: 20 UG, QD
  2. FORTEO [Suspect]
     Dosage: 20 UG, QD
  3. FORTEO [Suspect]
     Dosage: 20 UG, QD
  4. FORTEO [Suspect]
     Indication: OSTEOPOROSIS
     Dosage: 20 UG, QD
     Dates: start: 20111104

REACTIONS (12)
  - ASTHENIA [None]
  - ARTHRALGIA [None]
  - FEELING ABNORMAL [None]
  - PAIN [None]
  - EXPIRED DRUG ADMINISTERED [None]
  - MYALGIA [None]
  - BALANCE DISORDER [None]
  - FATIGUE [None]
  - SOMNOLENCE [None]
  - DISEASE PROGRESSION [None]
  - GLAUCOMA [None]
  - DIZZINESS [None]
